FAERS Safety Report 6416889-0 (Version None)
Quarter: 2009Q4

REPORT INFORMATION
  Report Type: 
  Country: None (occurrence: None)
  Receive Date: 20091023
  Receipt Date: 20091021
  Transmission Date: 20100525
  Serious: Yes (Hospitalization)
  Sender: FDA-Public Use
  Company Number: 20090021USST

PATIENT
  Age: 27 Year
  Sex: Male

DRUGS (5)
  1. NATULAN (PROCARBAZINE HYDROCHLORIDE) CAPSULES [Suspect]
     Indication: HODGKIN'S DISEASE
     Dosage: 50 MG DAILY, PO
     Route: 048
     Dates: start: 20090908, end: 20090915
  2. VEPESID [Suspect]
     Indication: HODGKIN'S DISEASE
     Dosage: 190 MG DAY, IV
     Route: 042
     Dates: start: 20090908, end: 20090915
  3. DOXORUBICIN HCL [Suspect]
     Indication: HODGKIN'S DISEASE
     Dosage: 45 MG DAILY, IV
     Route: 042
     Dates: start: 20090908
  4. ENDOXAN BAXTER [Concomitant]
  5. PREDNISONE [Concomitant]

REACTIONS (1)
  - HEPATOTOXICITY [None]
